FAERS Safety Report 5974484-1 (Version None)
Quarter: 2008Q4

REPORT INFORMATION
  Report Type: 
  Country: None (occurrence: None)
  Receive Date: 20081201
  Receipt Date: 20080130
  Transmission Date: 20090506
  Serious: No
  Sender: FDA-Public Use
  Company Number: US-AMGEN-KDL259645

PATIENT
  Sex: Female
  Weight: 117.6 kg

DRUGS (2)
  1. ENBREL [Suspect]
     Indication: RHEUMATOID ARTHRITIS
     Route: 058
     Dates: start: 20050907
  2. METHOTREXATE [Concomitant]
     Route: 048
     Dates: start: 20050217

REACTIONS (2)
  - GASTROENTERITIS VIRAL [None]
  - RHEUMATOID ARTHRITIS [None]
